FAERS Safety Report 12647188 (Version 1)
Quarter: 2016Q3

REPORT INFORMATION
  Report Type: Spontaneous
  Country: US (occurrence: US)
  Receive Date: 20160812
  Receipt Date: 20160812
  Transmission Date: 20161109
  Serious: No
  Sender: FDA-Public Use
  Company Number: US-BEH-2016072079

PATIENT
  Sex: Female
  Weight: 90.25 kg

DRUGS (12)
  1. KEFLEX [Concomitant]
     Active Substance: CEPHALEXIN
  2. HYDROXYZINE [Concomitant]
     Active Substance: HYDROXYZINE\HYDROXYZINE HYDROCHLORIDE
  3. VITAMINS WITH MINERALS [Concomitant]
     Active Substance: MINERALS\VITAMINS
  4. BERINERT [Suspect]
     Active Substance: HUMAN C1-ESTERASE INHIBITOR
     Dosage: 2500 IU, PRN
     Route: 042
  5. TRANEXAMIC [Concomitant]
  6. HYDROCORTISONE. [Concomitant]
     Active Substance: HYDROCORTISONE
  7. SYNTHROID [Concomitant]
     Active Substance: LEVOTHYROXINE SODIUM
  8. MELATONIN [Concomitant]
     Active Substance: MELATONIN
  9. BERINERT [Suspect]
     Active Substance: HUMAN C1-ESTERASE INHIBITOR
     Indication: HEREDITARY ANGIOEDEMA
     Dosage: UNK
     Route: 042
     Dates: start: 20140218
  10. EPIPEN [Concomitant]
     Active Substance: EPINEPHRINE
  11. FIRAZYR [Concomitant]
     Active Substance: ICATIBANT ACETATE
  12. CLARITIN [Concomitant]
     Active Substance: LORATADINE

REACTIONS (1)
  - Influenza [Unknown]
